FAERS Safety Report 7450650-3 (Version None)
Quarter: 2011Q2

REPORT INFORMATION
  Report Type: 
  Country: None (occurrence: None)
  Receive Date: 20110429
  Receipt Date: 20110429
  Transmission Date: 20111010
  Serious: Yes (Other)
  Sender: FDA-Public Use
  Company Number: None

PATIENT
  Sex: Female
  Weight: 90.2658 kg

DRUGS (3)
  1. ACETONIDE [Concomitant]
  2. TRIAMCINOLONE [Concomitant]
  3. LOVASTATIN [Suspect]
     Indication: BLOOD CHOLESTEROL INCREASED
     Dosage: 40MG TAB ONCE A DAY
     Dates: start: 20101001, end: 20110315

REACTIONS (3)
  - ORAL PAIN [None]
  - OROPHARYNGEAL PAIN [None]
  - STOMATITIS [None]
